FAERS Safety Report 24067011 (Version 1)
Quarter: 2024Q3

REPORT INFORMATION
  Report Type: Spontaneous
  Country: US (occurrence: US)
  Receive Date: 20240709
  Receipt Date: 20240709
  Transmission Date: 20241017
  Serious: No
  Sender: VISTAPHARM
  Company Number: US-VISTAPHARM-2024-US-024172

PATIENT
  Sex: Male

DRUGS (1)
  1. NYSTATIN [Suspect]
     Active Substance: NYSTATIN
     Indication: Burning mouth syndrome
     Route: 048

REACTIONS (3)
  - Condition aggravated [Unknown]
  - Burning mouth syndrome [Unknown]
  - Off label use [Unknown]
